FAERS Safety Report 6883132-8 (Version None)
Quarter: 2010Q3

REPORT INFORMATION
  Report Type: 
  Country: None (occurrence: None)
  Receive Date: 20100727
  Receipt Date: 20100712
  Transmission Date: 20110219
  Serious: Yes (Other)
  Sender: FDA-Public Use
  Company Number: AUR-APL-2010-01772

PATIENT
  Age: 2 Year
  Sex: Female

DRUGS (1)
  1. AMOXICILLIN [Suspect]
     Indication: URINARY TRACT INFECTION
     Dosage: 25MG/5ML, DAILY, ORAL
     Route: 048
     Dates: start: 20100428

REACTIONS (13)
  - ABDOMINAL PAIN UPPER [None]
  - ARTHRALGIA [None]
  - BACK PAIN [None]
  - DIZZINESS [None]
  - FATIGUE [None]
  - FUNGAL INFECTION [None]
  - LETHARGY [None]
  - MUSCULOSKELETAL STIFFNESS [None]
  - PRURITUS [None]
  - TOOTH DISCOLOURATION [None]
  - URINARY INCONTINENCE [None]
  - VULVOVAGINAL CANDIDIASIS [None]
  - YELLOW SKIN [None]
